FAERS Safety Report 12417700 (Version 2)
Quarter: 2016Q2

REPORT INFORMATION
  Report Type: Report from Study
  Country: US (occurrence: US)
  Receive Date: 20160530
  Receipt Date: 20160613
  Transmission Date: 20160815
  Serious: Yes (Death, Hospitalization)
  Sender: FDA-Public Use
  Company Number: PHEH2016US013199

PATIENT
  Sex: Female

DRUGS (1)
  1. ENTRESTO [Suspect]
     Active Substance: SACUBITRIL\VALSARTAN
     Indication: PRODUCT USED FOR UNKNOWN INDICATION
     Dosage: UNK
     Route: 065
     Dates: start: 20160316

REACTIONS (6)
  - Death [Fatal]
  - Bundle branch block left [Unknown]
  - Atrial fibrillation [Unknown]
  - Enterococcus test positive [Unknown]
  - Chest discomfort [Unknown]
  - Cardiac failure congestive [Unknown]
